FAERS Safety Report 8362853-4 (Version None)
Quarter: 2012Q2

REPORT INFORMATION
  Report Type: 
  Country: None (occurrence: None)
  Receive Date: 20120516
  Receipt Date: 20120514
  Transmission Date: 20120825
  Serious: Yes (Death)
  Sender: FDA-Public Use
  Company Number: PHHY2012NL041018

PATIENT
  Sex: Male

DRUGS (2)
  1. ZOMETA [Suspect]
     Dosage: 4MG/100 ML SOLUTION FOR IV INFUSION 1X PER 28 DAYS
     Route: 042
     Dates: start: 20120419
  2. ZOMETA [Suspect]
     Indication: PROSTATE CANCER METASTATIC
     Dosage: 4MG/100 ML SOLUTION FOR IV INFUSION 1X PER 28 DAYS
     Route: 042

REACTIONS (1)
  - DEATH [None]
